FAERS Safety Report 20377728 (Version 2)
Quarter: 2022Q1

REPORT INFORMATION
  Report Type: Spontaneous
  Country: US (occurrence: US)
  Receive Date: 20220126
  Receipt Date: 20220209
  Transmission Date: 20220423
  Serious: Yes (Other)
  Sender: FDA-Public Use
  Company Number: US-009507513-2201USA006991

PATIENT
  Sex: Male
  Weight: 82.086 kg

DRUGS (2)
  1. TEMODAR [Suspect]
     Active Substance: TEMOZOLOMIDE
     Dosage: 100 MILLIGRAM, ALSO REPORTED AS 3 CAPSULES DAILY FOR 5 DAYS
     Route: 048
  2. LOSARTAN POTASSIUM [Suspect]
     Active Substance: LOSARTAN POTASSIUM
     Dosage: 50 MILLIGRAM, ONCE DAILY

REACTIONS (8)
  - Osteonecrosis [Unknown]
  - Flatulence [Unknown]
  - Nocturia [Unknown]
  - Abdominal discomfort [Unknown]
  - Weight decreased [Unknown]
  - Abdominal pain upper [Unknown]
  - Dyspepsia [Unknown]
  - Fatigue [Unknown]
